FAERS Safety Report 8231668-X (Version None)
Quarter: 2012Q1

REPORT INFORMATION
  Report Type: 
  Country: None (occurrence: None)
  Receive Date: 20120323
  Receipt Date: 20120320
  Transmission Date: 20120608
  Serious: Yes (Other)
  Sender: FDA-Public Use
  Company Number: US-PFIZER INC-2012044767

PATIENT
  Sex: Female
  Weight: 114 kg

DRUGS (4)
  1. GLYBURIDE AND METFORMIN HYDROCHLORIDE [Concomitant]
     Dosage: 2.5/500 MG, 2X/DAY
  2. ACTOS [Concomitant]
     Dosage: 30 MG, 2X/DAY
  3. EFFEXOR XR [Concomitant]
     Dosage: 150 MG, 2X/DAY
  4. LIPITOR [Suspect]
     Indication: BLOOD CHOLESTEROL INCREASED
     Dosage: 40 MG, 1X/DAY

REACTIONS (1)
  - MYOCARDIAL INFARCTION [None]
